FAERS Safety Report 18601101 (Version 1)
Quarter: 2020Q4

REPORT INFORMATION
  Report Type: Spontaneous
  Country: US (occurrence: US)
  Receive Date: 20201210
  Receipt Date: 20201210
  Transmission Date: 20210114
  Serious: No
  Sender: FDA-Public Use
  Company Number: None

PATIENT
  Age: 33 Year
  Sex: Male
  Weight: 99 kg

DRUGS (2)
  1. BENZEDREX [Suspect]
     Active Substance: PROPYLHEXEDRINE
     Indication: SUBSTANCE USE
     Dosage: ?          OTHER ROUTE:SMOKED IN A PIPE??
     Dates: start: 20201207, end: 20201209
  2. SCHIZOPHRENIA MEDICATION [Concomitant]

REACTIONS (4)
  - Erythema [None]
  - Heart rate increased [None]
  - Drug abuse [None]
  - Drug dependence [None]

NARRATIVE: CASE EVENT DATE: 20201207
